FAERS Safety Report 25438990 (Version 1)
Quarter: 2025Q2

REPORT INFORMATION
  Report Type: Spontaneous
  Country: TR (occurrence: None)
  Receive Date: 20250612
  Receipt Date: 20250612
  Transmission Date: 20250717
  Serious: Yes (Other)
  Sender: FDA-CTU
  Company Number: None

PATIENT
  Age: 19 Year
  Sex: Female
  Weight: 56 kg

DRUGS (2)
  1. ULIPRISTAL ACETATE [Suspect]
     Active Substance: ULIPRISTAL ACETATE
  2. DEXKETOPROFEN [Concomitant]
     Active Substance: DEXKETOPROFEN

REACTIONS (4)
  - Polymenorrhoea [None]
  - Pelvic pain [None]
  - Product communication issue [None]
  - Insomnia [None]

NARRATIVE: CASE EVENT DATE: 20250612
